FAERS Safety Report 4966006-9 (Version None)
Quarter: 2006Q2

REPORT INFORMATION
  Report Type: 
  Country: None (occurrence: None)
  Receive Date: 20060407
  Receipt Date: 20060405
  Transmission Date: 20061013
  Serious: Yes (Disabling)
  Sender: FDA-Public Use
  Company Number: BR-GLAXOSMITHKLINE-A0600800A

PATIENT
  Age: 70 Year
  Sex: Female

DRUGS (1)
  1. FLIXONASE [Suspect]
     Indication: RHINITIS
     Dosage: 50MCG UNKNOWN
     Route: 045

REACTIONS (1)
  - BLINDNESS [None]
